FAERS Safety Report 7213569-9 (Version None)
Quarter: 2011Q1

REPORT INFORMATION
  Report Type: 
  Country: None (occurrence: None)
  Receive Date: 20110106
  Receipt Date: 20101229
  Transmission Date: 20110831
  Serious: Yes (Other)
  Sender: FDA-Public Use
  Company Number: US-ABBOTT-10P-163-0694336-00

PATIENT
  Sex: Female
  Weight: 68.1 kg

DRUGS (1)
  1. MERIDIA [Suspect]
     Indication: OBESITY
     Dates: start: 20060101, end: 20101001

REACTIONS (23)
  - PARASITIC GASTROENTERITIS [None]
  - ABDOMINAL PAIN UPPER [None]
  - CHEST DISCOMFORT [None]
  - BACK PAIN [None]
  - VOMITING [None]
  - DIZZINESS [None]
  - MALAISE [None]
  - CARDIAC DISORDER [None]
  - CARDIAC VALVE DISEASE [None]
  - CARDIOMEGALY [None]
  - SENSATION OF PRESSURE [None]
  - PYREXIA [None]
  - WEIGHT INCREASED [None]
  - ARRHYTHMIA [None]
  - PALPITATIONS [None]
  - MENISCUS LESION [None]
  - BLADDER PROLAPSE [None]
  - GASTROINTESTINAL OEDEMA [None]
  - ABDOMINAL DISTENSION [None]
  - HYPERTENSION [None]
  - DYSPNOEA [None]
  - ESCHERICHIA INFECTION [None]
  - SYNOVIAL CYST [None]
